FAERS Safety Report 5715287-2 (Version None)
Quarter: 2008Q2

REPORT INFORMATION
  Report Type: 
  Country: None (occurrence: None)
  Receive Date: 20080423
  Receipt Date: 20080418
  Transmission Date: 20081010
  Serious: Yes (Death, Hospitalization)
  Sender: FDA-Public Use
  Company Number: DE-ABBOTT-08P-062-0448394-00

PATIENT
  Age: 4 Year
  Sex: Female

DRUGS (7)
  1. CYCLOSPORINE [Suspect]
     Indication: GRAFT VERSUS HOST DISEASE
     Dosage: NOT REPORTED
  2. BUSULFAN [Concomitant]
     Indication: STEM CELL TRANSPLANT
     Dosage: NOT REPORTED
  3. MELPHALAN [Concomitant]
     Indication: STEM CELL TRANSPLANT
     Dosage: NOT REPORTED
  4. ANTIBACTERIAL PROPHYLAXIS [Concomitant]
     Indication: GRAFT VERSUS HOST DISEASE
     Dosage: NOT REPORTED
  5. ANTIFUNGAL PROPHYLAXIS [Concomitant]
     Indication: GRAFT VERSUS HOST DISEASE
     Dosage: NOT REPORTED
  6. ACYCLOVIR [Concomitant]
     Indication: GRAFT VERSUS HOST DISEASE
     Dosage: NOT REPORTED
  7. THYMOGLOBULIN [Concomitant]
     Indication: STEM CELL TRANSPLANT
     Dosage: NOT REPORTED

REACTIONS (2)
  - ASPERGILLOSIS [None]
  - GRAFT VERSUS HOST DISEASE [None]
